FAERS Safety Report 8806090 (Version 2)
Quarter: 2012Q4

REPORT INFORMATION
  Report Type: Spontaneous
  Country: US (occurrence: None)
  Receive Date: 20120917
  Receipt Date: 20121012
  Transmission Date: 20130627
  Serious: Yes (Hospitalization, Other)
  Sender: FDA-Public Use
  Company Number: 2012GMK003464

PATIENT
  Age: 57 Year
  Sex: Female

DRUGS (7)
  1. TOPIRAMATE [Suspect]
     Indication: MIGRAINE
     Route: 048
     Dates: start: 201205, end: 201207
  2. INSULIN (INSULIN) [Concomitant]
  3. ENALAPRIL (ENALAPRIL) [Concomitant]
  4. TRIAMTERENE (TRIAMTERENE) [Concomitant]
  5. ATENOLOL (ATENOLOL) [Concomitant]
  6. BONIVA (IBANDRONATE SODIUM) [Concomitant]
  7. CYMBALTA (DULOXETINE HYDROCHLORIDE) [Concomitant]

REACTIONS (17)
  - Dementia [None]
  - Anxiety [None]
  - Fatigue [None]
  - Asthenia [None]
  - Tremor [None]
  - Disturbance in attention [None]
  - Blood glucose increased [None]
  - Dysgeusia [None]
  - Visual impairment [None]
  - Swelling face [None]
  - Contusion [None]
  - Cough [None]
  - Feeling abnormal [None]
  - Alopecia [None]
  - Dyspnoea [None]
  - Crying [None]
  - Insomnia [None]
